FAERS Safety Report 10382106 (Version 1)
Quarter: 2014Q3

REPORT INFORMATION
  Report Type: Spontaneous
  Country: US (occurrence: US)
  Receive Date: 20140813
  Receipt Date: 20140813
  Transmission Date: 20150326
  Serious: Yes (Other)
  Sender: FDA-Public Use
  Company Number: US-PFIZER INC-2014223047

PATIENT
  Age: 64 Year
  Sex: Male

DRUGS (1)
  1. ATORVASTATIN CALCIUM. [Suspect]
     Active Substance: ATORVASTATIN CALCIUM
     Dosage: 20 MG, DAILY

REACTIONS (7)
  - Myalgia [Unknown]
  - Muscle spasms [Unknown]
  - Memory impairment [Unknown]
  - Fatigue [Unknown]
  - Disturbance in attention [Unknown]
  - Speech disorder [Unknown]
  - Decreased appetite [Unknown]
